FAERS Safety Report 6461338-X (Version None)
Quarter: 2009Q4

REPORT INFORMATION
  Report Type: 
  Country: None (occurrence: None)
  Receive Date: 20091123
  Receipt Date: 20091112
  Transmission Date: 20100525
  Serious: Yes (Hospitalization)
  Sender: FDA-Public Use
  Company Number: 2009019242

PATIENT
  Age: 54 Year
  Sex: Male
  Weight: 115 kg

DRUGS (3)
  1. TRISENOX [Suspect]
     Indication: ACUTE MYELOID LEUKAEMIA
     Dosage: 0.3 MG/KG, D1-5, INTRAVENOUS
     Route: 042
     Dates: start: 20091102
  2. DECITABINE (DECITABINE) [Suspect]
     Indication: ACUTE MYELOID LEUKAEMIA
     Dosage: 20 MG/M2, D1-5, INTRAVENOUS
     Route: 042
     Dates: start: 20091102
  3. ASCORBIC ACID [Suspect]
     Indication: ACUTE MYELOID LEUKAEMIA
     Dosage: 1000 MG, D1-5, INTRAVENOUS
     Route: 042
     Dates: start: 20091102

REACTIONS (4)
  - DIARRHOEA [None]
  - NEPHROTIC SYNDROME [None]
  - PANCYTOPENIA [None]
  - SPLENIC INFARCTION [None]
